FAERS Safety Report 6814737-8 (Version None)
Quarter: 2010Q2

REPORT INFORMATION
  Report Type: 
  Country: None (occurrence: None)
  Receive Date: 20100629
  Receipt Date: 20100617
  Transmission Date: 20101027
  Serious: Yes (Death, Life-Threatening, Hospitalization)
  Sender: FDA-Public Use
  Company Number: 2009AL004911

PATIENT
  Age: 72 Year
  Sex: Female

DRUGS (7)
  1. ACYCLOVIR [Suspect]
     Dosage: 300 MG; TID; IV
     Route: 042
  2. LISINOPRIL [Concomitant]
  3. FOLIC ACID [Concomitant]
  4. ADCAL-D3 [Concomitant]
  5. ALENDRONIC ACID [Concomitant]
  6. PREDNISOLONE [Concomitant]
  7. AZATHIOPRINE [Concomitant]

REACTIONS (4)
  - CONVULSION [None]
  - DYSARTHRIA [None]
  - LEUKOENCEPHALOPATHY [None]
  - VASCULITIS [None]
